FAERS Safety Report 15980768 (Version 2)
Quarter: 2019Q2

REPORT INFORMATION
  Report Type: Spontaneous
  Country: US (occurrence: US)
  Receive Date: 20190219
  Receipt Date: 20190412
  Transmission Date: 20190711
  Serious: Yes (Other)
  Sender: FDA-Public Use
  Company Number: US-PFIZER INC-2019061606

PATIENT
  Age: 64 Year
  Sex: Male
  Weight: 89.75 kg

DRUGS (3)
  1. BABY ASPIRIN [Concomitant]
     Active Substance: ASPIRIN
     Dosage: UNK UNK, DAILY
  2. XELJANZ XR [Suspect]
     Active Substance: TOFACITINIB CITRATE
     Indication: RHEUMATOID ARTHRITIS
     Dosage: 11 MG, DAILY
     Route: 048
  3. XELJANZ [Suspect]
     Active Substance: TOFACITINIB CITRATE
     Indication: RHEUMATOID ARTHRITIS
     Dosage: 5 MG, 2X/DAY (ONE IN THE MORNING, ONE AT NIGHT)
     Dates: start: 2013

REACTIONS (5)
  - Cerebrovascular accident [Unknown]
  - Herpes zoster [Unknown]
  - Nerve injury [Unknown]
  - Hypertension [Unknown]
  - Sleep disorder [Unknown]

NARRATIVE: CASE EVENT DATE: 201710
